FAERS Safety Report 17682057 (Version 1)
Quarter: 2020Q2

REPORT INFORMATION
  Report Type: Report from Study
  Country: US (occurrence: US)
  Receive Date: 20200418
  Receipt Date: 20200418
  Transmission Date: 20200714
  Serious: Yes (Death, Other)
  Sender: FDA-Public Use
  Company Number: US-ROCHE-2582877

PATIENT
  Age: 46 Year
  Sex: Male

DRUGS (1)
  1. TECENTRIQ [Suspect]
     Active Substance: ATEZOLIZUMAB
     Indication: LUNG NEOPLASM MALIGNANT
     Route: 041
     Dates: start: 20200116, end: 20200116

REACTIONS (2)
  - Lung neoplasm malignant [Fatal]
  - Malaise [Unknown]

NARRATIVE: CASE EVENT DATE: 20200403
